FAERS Safety Report 9337402 (Version 5)
Quarter: 2013Q4

REPORT INFORMATION
  Report Type: Spontaneous
  Country: CH (occurrence: CH)
  Receive Date: 20130607
  Receipt Date: 20131119
  Transmission Date: 20140711
  Serious: Yes (Hospitalization, Disabling, Other)
  Sender: FDA-Public Use
  Company Number: CH-CELGENEUS-151-21880-13054281

PATIENT
  Age: 69 Year
  Sex: Male

DRUGS (4)
  1. REVLIMID [Suspect]
     Indication: PLASMA CELL MYELOMA
     Dosage: 25 MILLIGRAM
     Route: 048
     Dates: start: 20120809, end: 20130508
  2. DEXAMETHASONE [Suspect]
     Indication: PLASMA CELL MYELOMA
     Route: 048
     Dates: start: 20120809, end: 20130408
  3. DEXAMETHASONE [Suspect]
     Route: 048
     Dates: start: 20130430, end: 20130508
  4. BENDAMUSTINE [Suspect]
     Indication: PLASMA CELL MYELOMA
     Route: 041
     Dates: start: 20120809, end: 20130108

REACTIONS (1)
  - Angiocentric lymphoma [Not Recovered/Not Resolved]
